FAERS Safety Report 13941058 (Version 2)
Quarter: 2017Q3

REPORT INFORMATION
  Report Type: Spontaneous
  Country: AU (occurrence: AU)
  Receive Date: 20170906
  Receipt Date: 20170921
  Transmission Date: 20171127
  Serious: Yes (Other)
  Sender: FDA-Public Use
  Company Number: AU-PFIZER INC-2017371732

PATIENT
  Age: 38 Year
  Sex: Male
  Weight: 108.8 kg

DRUGS (7)
  1. BENZTROPINE [Suspect]
     Active Substance: BENZTROPINE
     Dosage: 2 MG MORNING AS NEEDED
     Route: 048
  2. CLOPINE [Suspect]
     Active Substance: CLOZAPINE
     Indication: SCHIZOPHRENIA
     Dosage: 350 MG MORNING / 550 MG NIGHT
     Route: 048
     Dates: start: 20150924
  3. PALIPERIDONE. [Concomitant]
     Active Substance: PALIPERIDONE
     Dosage: 150 MG, 4 WEEKLY
     Route: 030
     Dates: start: 2015
  4. VENLAFAXINE [Concomitant]
     Active Substance: VENLAFAXINE HYDROCHLORIDE
     Indication: SCHIZOPHRENIA
     Dosage: 150 MG, MANE
     Route: 048
     Dates: start: 2016
  5. SODIUM VALPROATE [Concomitant]
     Active Substance: VALPROATE SODIUM
     Indication: SCHIZOPHRENIA
     Dosage: 500 MG, 2X/DAY
     Route: 048
     Dates: start: 2016
  6. CLOZAPINE. [Suspect]
     Active Substance: CLOZAPINE
     Indication: SCHIZOPHRENIA
     Dosage: UNK
     Dates: start: 20150821
  7. VENLAFAXINE [Concomitant]
     Active Substance: VENLAFAXINE HYDROCHLORIDE
     Indication: DEPRESSIVE SYMPTOM

REACTIONS (3)
  - Atrioventricular block [Not Recovered/Not Resolved]
  - Ejection fraction abnormal [Unknown]
  - Cardiac disorder [Unknown]

NARRATIVE: CASE EVENT DATE: 20170310
